FAERS Safety Report 7859933-6 (Version None)
Quarter: 2011Q4

REPORT INFORMATION
  Report Type: 
  Country: None (occurrence: None)
  Receive Date: 20111026
  Receipt Date: 20111026
  Transmission Date: 20120403
  Serious: Yes (Hospitalization)
  Sender: FDA-Public Use
  Company Number: None

PATIENT
  Age: 25 Year
  Sex: Female
  Weight: 75.3 kg

DRUGS (2)
  1. OTHER ORAL CONTRACEPTIVE [Concomitant]
     Indication: ORAL CONTRACEPTION
  2. MICROGESTIN FE 1/20 [Suspect]
     Indication: ORAL CONTRACEPTION
     Dosage: 28-TABLET PACKAGE ONCE DAILY ORAL
     Route: 048

REACTIONS (2)
  - HEADACHE [None]
  - VERTEBRAL ARTERY DISSECTION [None]
